FAERS Safety Report 15554152 (Version 2)
Quarter: 2018Q4

REPORT INFORMATION
  Report Type: Spontaneous
  Country: US (occurrence: US)
  Receive Date: 20181026
  Receipt Date: 20181109
  Transmission Date: 20190205
  Serious: No
  Sender: FDA-Public Use
  Company Number: US-B.I. PHARMACEUTICALS,INC./RIDGEFIELD-2018-BI-052460

PATIENT
  Sex: Female

DRUGS (1)
  1. SPIRIVA [Suspect]
     Active Substance: TIOTROPIUM BROMIDE MONOHYDRATE
     Indication: PULMONARY HYPERTENSION
     Dosage: ;  FORM STRENGTH: 18 MCG; FORMULATION: CAPSULE??ACTION(S) TAKEN WITH PRODUCT: DOSE NOT CHANGED
     Route: 055
     Dates: start: 2017

REACTIONS (3)
  - Product quality issue [Unknown]
  - Off label use [Unknown]
  - Overdose [Not Recovered/Not Resolved]

NARRATIVE: CASE EVENT DATE: 2017
